FAERS Safety Report 10072204 (Version 1)
Quarter: 2014Q2

REPORT INFORMATION
  Report Type: Spontaneous
  Country: US (occurrence: None)
  Receive Date: 20140410
  Receipt Date: 20140410
  Transmission Date: 20141212
  Serious: Yes (Life-Threatening)
  Sender: FDA-Public Use
  Company Number: None

PATIENT
  Age: 37 Year
  Sex: Female
  Weight: 80.74 kg

DRUGS (1)
  1. CHANTIX [Suspect]
     Indication: SMOKING CESSATION THERAPY
     Route: 048
     Dates: start: 20140327, end: 20140407

REACTIONS (7)
  - Chest pain [None]
  - Cardiac disorder [None]
  - Dyspnoea [None]
  - Somnolence [None]
  - Nausea [None]
  - Dizziness [None]
  - Chest discomfort [None]
